FAERS Safety Report 20205819 (Version 3)
Quarter: 2022Q2

REPORT INFORMATION
  Report Type: Spontaneous
  Country: FR (occurrence: FR)
  Receive Date: 20211220
  Receipt Date: 20220622
  Transmission Date: 20220721
  Serious: Yes (Other)
  Sender: FDA-Public Use
  Company Number: None

PATIENT
  Age: 28 Year
  Sex: Female

DRUGS (6)
  1. ETOPOSIDE [Suspect]
     Active Substance: ETOPOSIDE
     Indication: Adenocarcinoma
     Dosage: 100 MILLIGRAM/SQ. METER, QD, C1J1-J2-J3
     Route: 041
     Dates: start: 20211014, end: 20211016
  2. ETOPOSIDE [Suspect]
     Active Substance: ETOPOSIDE
     Dosage: 100 MILLIGRAM/SQ. METER, 100 MG/M2 (D1, D2, D3)
  3. CISPLATIN [Suspect]
     Active Substance: CISPLATIN
     Indication: Adenocarcinoma
     Dosage: 100 MILLIGRAM/SQ. METER, QD, C1J1
     Route: 041
     Dates: start: 20211014, end: 20211014
  4. CISPLATIN [Suspect]
     Active Substance: CISPLATIN
     Dosage: 100 MILLIGRAM/SQ. METER, 100 MG/M2 (D1)
  5. NEULASTA [Suspect]
     Active Substance: PEGFILGRASTIM
     Indication: Neutropenia
     Dosage: 6 MILLIGRAM, TOTAL
     Route: 058
     Dates: start: 20211017, end: 20211017
  6. NEULASTA [Suspect]
     Active Substance: PEGFILGRASTIM
     Indication: Adenocarcinoma
     Dosage: 6 MILLIGRAM

REACTIONS (3)
  - Extremity necrosis [Unknown]
  - Hyperleukocytosis [Unknown]
  - Condition aggravated [Recovering/Resolving]

NARRATIVE: CASE EVENT DATE: 20211018
